FAERS Safety Report 14854958 (Version 4)
Quarter: 2018Q2

REPORT INFORMATION
  Report Type: Spontaneous
  Country: US (occurrence: US)
  Receive Date: 20180507
  Receipt Date: 20180521
  Transmission Date: 20180711
  Serious: Yes (Hospitalization, Other)
  Sender: FDA-Public Use
  Company Number: US-CELGENEUS-USA-20180500840

PATIENT
  Age: 70 Year
  Sex: Female
  Weight: 51.3 kg

DRUGS (7)
  1. REVLIMID [Suspect]
     Active Substance: LENALIDOMIDE
     Indication: PLASMA CELL MYELOMA
     Dosage: 25 MILLIGRAM
     Route: 048
     Dates: start: 20160511
  2. MARINOL [Concomitant]
     Active Substance: DRONABINOL
     Indication: APPETITE DISORDER
     Dosage: 5 MILLIGRAM
     Route: 048
     Dates: start: 20180430
  3. REVLIMID [Suspect]
     Active Substance: LENALIDOMIDE
     Dosage: 15 MILLIGRAM
     Route: 048
     Dates: start: 201709
  4. XANAX [Concomitant]
     Active Substance: ALPRAZOLAM
     Indication: ANXIETY
     Dosage: .25 MILLIGRAM
     Route: 048
     Dates: start: 20180410
  5. REVLIMID [Suspect]
     Active Substance: LENALIDOMIDE
     Dosage: 10 MILLIGRAM
     Route: 048
     Dates: start: 201712
  6. DEXAMETHASONE. [Concomitant]
     Active Substance: DEXAMETHASONE
     Indication: PRODUCT USED FOR UNKNOWN INDICATION
     Dosage: 8 MILLIGRAM
     Route: 048
     Dates: start: 20180330
  7. METOPROLOL SUCCINATE. [Concomitant]
     Active Substance: METOPROLOL SUCCINATE
     Indication: ANXIETY
     Dosage: 25 MILLIGRAM
     Route: 048
     Dates: start: 20170906

REACTIONS (6)
  - Iron deficiency [Unknown]
  - Renal failure [Unknown]
  - Atrial fibrillation [Unknown]
  - Deep vein thrombosis [Unknown]
  - Anaemia [Unknown]
  - Hypertension [Unknown]

NARRATIVE: CASE EVENT DATE: 20180329
